FAERS Safety Report 14716365 (Version 3)
Quarter: 2018Q2

REPORT INFORMATION
  Report Type: Spontaneous
  Country: FR (occurrence: FR)
  Receive Date: 20180404
  Receipt Date: 20180628
  Transmission Date: 20180711
  Serious: Yes (Death, Hospitalization)
  Sender: FDA-Public Use
  Company Number: PHHY2018FR058612

PATIENT
  Age: 70 Year
  Sex: Female

DRUGS (3)
  1. OXALIPLATIN. [Suspect]
     Active Substance: OXALIPLATIN
     Indication: PRODUCT USED FOR UNKNOWN INDICATION
     Dosage: 85 MG/M2, CYCLIC (EVERY 14 DAYS)
     Route: 065
     Dates: start: 20170901, end: 20171229
  2. OCTREOTIDE. [Suspect]
     Active Substance: OCTREOTIDE
     Indication: PRODUCT USED FOR UNKNOWN INDICATION
     Dosage: 30 MG, CYCLIC (EVERY 28 DAYS)
     Route: 065
     Dates: start: 20170510, end: 20171230
  3. FLUOROURACIL. [Suspect]
     Active Substance: FLUOROURACIL
     Indication: PRODUCT USED FOR UNKNOWN INDICATION
     Dosage: 2400 MG/M2, CYCLIC (EVERY 14 DAYS)
     Route: 065
     Dates: start: 20170901, end: 20171229

REACTIONS (3)
  - Thrombocytopenia [Recovered/Resolved]
  - General physical health deterioration [Not Recovered/Not Resolved]
  - Neoplasm progression [Fatal]

NARRATIVE: CASE EVENT DATE: 20171213
